FAERS Safety Report 16030294 (Version 1)
Quarter: 2019Q1

REPORT INFORMATION
  Report Type: Spontaneous
  Country: US (occurrence: US)
  Receive Date: 20190208
  Receipt Date: 20190208
  Transmission Date: 20190418
  Serious: No
  Sender: FDA-Public Use
  Company Number: None

PATIENT
  Sex: Female

DRUGS (2)
  1. EPCLUSA [Suspect]
     Active Substance: SOFOSBUVIR\VELPATASVIR
     Indication: CHRONIC HEPATITIS C
     Dosage: ?          OTHER DOSE:TAKE 1 TABLET; EVERY DAY WITH OR WHITOUT FOOD AS DIRECTED.?
     Route: 048
     Dates: start: 201812
  2. EPCLUSA [Suspect]
     Active Substance: SOFOSBUVIR\VELPATASVIR
     Indication: HEPATITIS C
     Dosage: ?          OTHER DOSE:TAKE 1 TABLET; EVERY DAY WITH OR WHITOUT FOOD AS DIRECTED.?
     Route: 048
     Dates: start: 201812

REACTIONS (2)
  - Nerve compression [None]
  - Headache [None]
